FAERS Safety Report 7504186-1 (Version None)
Quarter: 2011Q2

REPORT INFORMATION
  Report Type: 
  Country: None (occurrence: None)
  Receive Date: 20110401
  Receipt Date: 20101116
  Transmission Date: 20111010
  Serious: No
  Sender: FDA-Public Use
  Company Number: US-004157

PATIENT
  Age: 59 Year
  Sex: Male
  Weight: 136.0791 kg

DRUGS (4)
  1. FIRMAGON [Suspect]
  2. FIRMAGON [Suspect]
  3. FIRMAGON [Suspect]
     Indication: PROSTATE CANCER
     Dosage: 240 MG TOTAL SUBCUTANEOUS, SUBCUTANEOUS
     Route: 058
     Dates: start: 20100903, end: 20100903
  4. FIRMAGON [Suspect]
     Indication: PROSTATE CANCER
     Dosage: 240 MG TOTAL SUBCUTANEOUS, SUBCUTANEOUS
     Route: 058
     Dates: start: 20101004, end: 20101104

REACTIONS (2)
  - PROSTATIC SPECIFIC ANTIGEN INCREASED [None]
  - DRUG INEFFECTIVE [None]
